FAERS Safety Report 5520394-3 (Version None)
Quarter: 2007Q4

REPORT INFORMATION
  Report Type: 
  Country: None (occurrence: None)
  Receive Date: 20071119
  Receipt Date: 20071112
  Transmission Date: 20080405
  Serious: Yes (Other)
  Sender: FDA-Public Use
  Company Number: FR-SOLVAY-00207034907

PATIENT
  Age: 21 Year
  Sex: Female

DRUGS (4)
  1. PERINDOPRIL [Suspect]
     Indication: ILL-DEFINED DISORDER
     Dosage: DAILY DOSE:  UNKNOWN
     Route: 065
  2. PREDNISONE TAB [Concomitant]
     Indication: LUPUS NEPHRITIS
     Dosage: DAILY DOSE:  UNKNOWN
     Route: 065
  3. HYDROXYCHLOROQUINE SULFATE [Concomitant]
     Indication: LUPUS NEPHRITIS
     Dosage: DAILY DOSE:  UNKNOWN
     Route: 065
  4. MYCOPHENOLATE MOFETIL [Suspect]
     Indication: LUPUS NEPHRITIS
     Dosage: DAILY DOSE: 2000 MILLIGRAM(S)
     Route: 065

REACTIONS (1)
  - ABORTION INDUCED [None]
